FAERS Safety Report 6493332-7 (Version None)
Quarter: 2009Q4

REPORT INFORMATION
  Report Type: 
  Country: None (occurrence: None)
  Receive Date: 20091209
  Receipt Date: 20091123
  Transmission Date: 20100525
  Serious: Yes (Disabling, Other)
  Sender: FDA-Public Use
  Company Number: 1-20481671

PATIENT
  Sex: Male

DRUGS (1)
  1. NYSTATIN + TRIAMCINOLONE ACETONIDE [Suspect]
     Indication: FUNGAL INFECTION
     Dosage: TOPICAL
     Route: 061
     Dates: start: 20070101

REACTIONS (5)
  - APPLICATION SITE DISCOLOURATION [None]
  - DEPRESSED LEVEL OF CONSCIOUSNESS [None]
  - DRUG INEFFECTIVE [None]
  - DRY SKIN [None]
  - SENSORY LOSS [None]
